FAERS Safety Report 13788851 (Version 1)
Quarter: 2017Q3

REPORT INFORMATION
  Report Type: Spontaneous
  Country: US (occurrence: US)
  Receive Date: 20170725
  Receipt Date: 20170725
  Transmission Date: 20171127
  Serious: No
  Sender: FDA-Public Use
  Company Number: US-UNITED THERAPEUTICS-UNT-2017-004959

PATIENT
  Age: 54 Year
  Sex: Female

DRUGS (3)
  1. LETAIRIS [Suspect]
     Active Substance: AMBRISENTAN
     Indication: PULMONARY ARTERIAL HYPERTENSION
     Dosage: 5 MG, QD
     Route: 065
     Dates: start: 20150407
  2. REMODULIN [Suspect]
     Active Substance: TREPROSTINIL
     Dosage: 0.0855 ?G/KG, CONTINUING
     Route: 058
     Dates: start: 20170327
  3. REMODULIN [Suspect]
     Active Substance: TREPROSTINIL
     Indication: PRODUCT USED FOR UNKNOWN INDICATION
     Dosage: 0.092 ?G/KG, CONTINUING
     Route: 058
     Dates: start: 20140722, end: 20170327

REACTIONS (1)
  - Hypoxia [Unknown]
